FAERS Safety Report 7349214-1 (Version None)
Quarter: 2011Q1

REPORT INFORMATION
  Report Type: 
  Country: None (occurrence: None)
  Receive Date: 20110314
  Receipt Date: 20110303
  Transmission Date: 20110831
  Serious: Yes (Hospitalization, Other)
  Sender: FDA-Public Use
  Company Number: TH-PERRIGO-11TH001994

PATIENT
  Age: 8 Month
  Sex: Female
  Weight: 11 kg

DRUGS (5)
  1. NEOMYCIN [Suspect]
     Indication: DERMATITIS DIAPER
     Dosage: UNK, 8-9 TIMES/DAY
     Route: 061
  2. GRAMICIDIN [Suspect]
     Indication: DERMATITIS DIAPER
     Dosage: UNK, 8-9 TIMES/DAILY
     Route: 061
  3. CLOBETASOL PROPIONATE RX 0.05% 2P1 [Suspect]
     Indication: DERMATITIS DIAPER
     Dosage: 300 G, 8-9 TIMES/DAILY
     Route: 061
  4. NYSTATIN [Suspect]
     Indication: DERMATITIS DIAPER
     Dosage: UNK, 8-9 TIMES/DAY
     Route: 061
  5. TRIAMCINOLONE [Suspect]
     Indication: DERMATITIS DIAPER
     Dosage: UNK, 8-9 TIMES/DAILY
     Route: 061

REACTIONS (14)
  - WEIGHT INCREASED [None]
  - ADRENAL INSUFFICIENCY [None]
  - CENTRAL OBESITY [None]
  - HIRSUTISM [None]
  - PAPULE [None]
  - INCORRECT DRUG ADMINISTRATION DURATION [None]
  - CUSHING'S SYNDROME [None]
  - CUSHINGOID [None]
  - INFECTION [None]
  - LIPOHYPERTROPHY [None]
  - RASH PUSTULAR [None]
  - INAPPROPRIATE SCHEDULE OF DRUG ADMINISTRATION [None]
  - OFF LABEL USE [None]
  - IMMUNOSUPPRESSION [None]
